FAERS Safety Report 18228156 (Version 1)
Quarter: 2020Q3

REPORT INFORMATION
  Report Type: Spontaneous
  Country: CN (occurrence: CN)
  Receive Date: 20200903
  Receipt Date: 20200903
  Transmission Date: 20201103
  Serious: Yes (Hospitalization)
  Sender: FDA-Public Use
  Company Number: CN-ASTRAZENECA-2020SF09737

PATIENT

DRUGS (1)
  1. IRESSA [Suspect]
     Active Substance: GEFITINIB
     Route: 048

REACTIONS (8)
  - Diarrhoea [Unknown]
  - Transaminases increased [Unknown]
  - Pyrexia [Unknown]
  - Discomfort [Unknown]
  - Renal failure [Unknown]
  - Decreased appetite [Unknown]
  - Hepatic failure [Unknown]
  - Blood creatinine increased [Unknown]
